FAERS Safety Report 4362345-3 (Version None)
Quarter: 2004Q2

REPORT INFORMATION
  Report Type: 
  Country: None (occurrence: None)
  Receive Date: 20040521
  Receipt Date: 20040323
  Transmission Date: 20050107
  Serious: Yes (Death, Other)
  Sender: FDA-Public Use
  Company Number: US-BRISTOL-MYERS SQUIBB COMPANY-12542791

PATIENT
  Age: 15 Year
  Sex: Female
  Weight: 47 kg

DRUGS (15)
  1. MAXIPIME [Suspect]
     Indication: PSEUDOMONAS INFECTION
     Dates: start: 20040308, end: 20040321
  2. GENTAMICIN [Suspect]
     Dates: start: 20040308, end: 20040320
  3. LINEZOLID [Concomitant]
     Route: 048
     Dates: start: 20020827
  4. OXACILLIN SODIUM [Concomitant]
     Dates: start: 20040308, end: 20040311
  5. BIAXIN [Concomitant]
     Route: 048
     Dates: start: 20020813
  6. MULTI-VITAMIN [Concomitant]
  7. ADEKS [Concomitant]
  8. ULTRASE MT20 [Concomitant]
  9. CALCIUM [Concomitant]
  10. VITAMIN D [Concomitant]
  11. TYLENOL [Concomitant]
  12. IBUPROFEN [Concomitant]
  13. LACTOBACILLUS [Concomitant]
     Route: 048
  14. PULMOZYME [Concomitant]
     Route: 055
  15. ALBUTEROL [Concomitant]

REACTIONS (13)
  - BRAIN OEDEMA [None]
  - CEREBRAL VENTRICLE DILATATION [None]
  - DIALYSIS [None]
  - GRANULOMA [None]
  - INTRACRANIAL PRESSURE INCREASED [None]
  - LEUKOENCEPHALOPATHY [None]
  - MYOCARDIAL INFARCTION [None]
  - NEPHROPATHY TOXIC [None]
  - NERVOUS SYSTEM DISORDER [None]
  - NEUROTOXICITY [None]
  - PROTHROMBIN TIME PROLONGED [None]
  - RENAL FAILURE [None]
  - RENAL TUBULAR NECROSIS [None]
